FAERS Safety Report 7539997-X (Version None)
Quarter: 2011Q2

REPORT INFORMATION
  Report Type: 
  Country: None (occurrence: None)
  Receive Date: 20110610
  Receipt Date: 20110602
  Transmission Date: 20111010
  Serious: Yes (Death)
  Sender: FDA-Public Use
  Company Number: US-ACTELION-A-US2011-49824

PATIENT

DRUGS (2)
  1. BETA BLOCKING AGENTS [Concomitant]
     Dosage: UNK
  2. TRACLEER [Suspect]
     Indication: PULMONARY ARTERIAL HYPERTENSION
     Dosage: UNK
     Route: 048
     Dates: start: 20080919, end: 20110517

REACTIONS (1)
  - DEATH [None]
